FAERS Safety Report 12680453 (Version 1)
Quarter: 2016Q3

REPORT INFORMATION
  Report Type: Spontaneous
  Country: GB (occurrence: GB)
  Receive Date: 20160824
  Receipt Date: 20160824
  Transmission Date: 20161109
  Serious: Yes (Disabling, Other)
  Sender: FDA-Public Use
  Company Number: GB-GALDERMA-GB16005639

PATIENT
  Age: 56 Year
  Sex: Male
  Weight: 91.16 kg

DRUGS (2)
  1. MIRVASO [Suspect]
     Active Substance: BRIMONIDINE TARTRATE
     Indication: PAPULOPUSTULAR ROSACEA
     Route: 061
     Dates: start: 20160220, end: 20160803
  2. ROZEX (METRONIDAZOLE) [Concomitant]
     Active Substance: METRONIDAZOLE
     Indication: PRODUCT USED FOR UNKNOWN INDICATION

REACTIONS (11)
  - Pruritus [Not Recovered/Not Resolved]
  - Erythema [Unknown]
  - Oedema [Not Recovered/Not Resolved]
  - Swelling face [Not Recovered/Not Resolved]
  - Erysipelas [Unknown]
  - Skin exfoliation [Unknown]
  - Flushing [Not Recovered/Not Resolved]
  - Rosacea [Unknown]
  - Hypersensitivity [Unknown]
  - Application site discharge [Unknown]
  - Burning sensation [Not Recovered/Not Resolved]

NARRATIVE: CASE EVENT DATE: 20160706
